FAERS Safety Report 24406211 (Version 3)
Quarter: 2024Q4

REPORT INFORMATION
  Report Type: Report from Study
  Country: AU (occurrence: AU)
  Receive Date: 20241007
  Receipt Date: 20241014
  Transmission Date: 20250115
  Serious: Yes (Life-Threatening, Hospitalization)
  Sender: PFIZER
  Company Number: AU-PFIZER INC-2020473804

PATIENT
  Age: 49 Year
  Sex: Female
  Weight: 104 kg

DRUGS (1)
  1. TALAZOPARIB [Suspect]
     Active Substance: TALAZOPARIB
     Dosage: 0.5 MG, DAILY, TABLET
     Route: 048
     Dates: start: 2017, end: 20240904

REACTIONS (2)
  - Second primary malignancy [Not Recovered/Not Resolved]
  - Acute erythroid leukaemia [Not Recovered/Not Resolved]

NARRATIVE: CASE EVENT DATE: 20240903
